FAERS Safety Report 25850606 (Version 1)
Quarter: 2025Q3

REPORT INFORMATION
  Report Type: Report from Study
  Country: US (occurrence: US)
  Receive Date: 20250926
  Receipt Date: 20250926
  Transmission Date: 20251021
  Serious: Yes (Hospitalization, Other)
  Sender: ABBVIE
  Company Number: US-ABBVIE-6438170

PATIENT
  Age: 67 Year
  Sex: Female

DRUGS (2)
  1. DUOPA [Suspect]
     Active Substance: CARBIDOPA\LEVODOPA
     Indication: Parkinson^s disease
     Route: 050
     Dates: start: 20220922
  2. DUOPA [Suspect]
     Active Substance: CARBIDOPA\LEVODOPA

REACTIONS (4)
  - Surgery [Unknown]
  - Hospitalisation [Recovered/Resolved]
  - Device issue [Not Recovered/Not Resolved]
  - Stoma site inflammation [Unknown]

NARRATIVE: CASE EVENT DATE: 20250801
